FAERS Safety Report 19774924 (Version 1)
Quarter: 2021Q3

REPORT INFORMATION
  Report Type: Spontaneous
  Country: US (occurrence: US)
  Receive Date: 20210901
  Receipt Date: 20210901
  Transmission Date: 20211014
  Serious: No
  Sender: FDA-Public Use
  Company Number: US-GALDERMA-US2021014799

PATIENT

DRUGS (3)
  1. DIFFERIN [Suspect]
     Active Substance: ADAPALENE
     Dosage: 1 DOSAGE FORM
     Route: 061
     Dates: start: 20210729
  2. VITAMINS NOS [Concomitant]
     Active Substance: VITAMINS
     Indication: PRODUCT USED FOR UNKNOWN INDICATION
  3. DIFFERIN [Suspect]
     Active Substance: ADAPALENE
     Indication: SKIN HYPERPIGMENTATION
     Dosage: 1 DOSAGE FORM, ONCE DAILY FOR 6?7 DAYS
     Route: 061
     Dates: start: 2021, end: 2021

REACTIONS (2)
  - Product use in unapproved indication [Recovered/Resolved]
  - Drug ineffective for unapproved indication [Recovered/Resolved]
